FAERS Safety Report 26126643 (Version 1)
Quarter: 2025Q4

REPORT INFORMATION
  Report Type: Spontaneous
  Country: US (occurrence: None)
  Receive Date: 20251205
  Receipt Date: 20251205
  Transmission Date: 20260118
  Serious: Yes (Hospitalization)
  Sender: FDA-CTU
  Company Number: None

PATIENT
  Age: 70 Year
  Sex: Male

DRUGS (5)
  1. COSENTYX [Suspect]
     Active Substance: SECUKINUMAB
     Indication: Hidradenitis
     Dosage: 300MG/2ML- 1PK INJ\1\ AT WEEK 0, 2, 3 AND 4, THEN Q2W\THEREAFTER? ?
  2. HYDROCHLOROTHIAZIDE [Suspect]
     Active Substance: HYDROCHLOROTHIAZIDE
  3. QVAR [Suspect]
     Active Substance: BECLOMETHASONE DIPROPIONATE
  4. HUMIRA [Suspect]
     Active Substance: ADALIMUMAB
  5. LISINOPRIL [Suspect]
     Active Substance: LISINOPRIL

REACTIONS (6)
  - Dizziness [None]
  - Paranoia [None]
  - Pain [None]
  - Road traffic accident [None]
  - Renal disorder [None]
  - Skin weeping [None]
